FAERS Safety Report 9164829 (Version 1)
Quarter: 2013Q1

REPORT INFORMATION
  Report Type: Spontaneous
  Country: US (occurrence: US)
  Receive Date: 20130315
  Receipt Date: 20130315
  Transmission Date: 20140127
  Serious: Yes (Death)
  Sender: FDA-Public Use
  Company Number: US-PFIZER INC-2013084719

PATIENT
  Age: 63 Year
  Sex: Female

DRUGS (1)
  1. CAMPTOSAR [Suspect]
     Indication: COLON CANCER
     Dosage: 300 MG, UNK
     Dates: start: 20120906, end: 20130219

REACTIONS (2)
  - Disease progression [Fatal]
  - Colon cancer [Fatal]
